FAERS Safety Report 22321966 (Version 1)
Quarter: 2023Q2

REPORT INFORMATION
  Report Type: Spontaneous
  Country: US (occurrence: US)
  Receive Date: 20230516
  Receipt Date: 20230516
  Transmission Date: 20230722
  Serious: Yes (Other)
  Sender: FDA-Public Use
  Company Number: US-JNJFOC-20230518144

PATIENT
  Age: 6 Decade
  Sex: Male

DRUGS (4)
  1. SPRAVATO [Suspect]
     Active Substance: ESKETAMINE
     Indication: Depression
     Dosage: ^56 MG, 2 TOTAL DOSES^
     Dates: start: 20220201, end: 20220211
  2. SPRAVATO [Suspect]
     Active Substance: ESKETAMINE
     Dosage: ^84 MG, 29 TOTAL DOSES^
     Dates: start: 20220216, end: 20220831
  3. SPRAVATO [Suspect]
     Active Substance: ESKETAMINE
     Dosage: ^UNSPECIFIED DOSE, 1 TOTAL DOSE^
  4. SPRAVATO [Suspect]
     Active Substance: ESKETAMINE
     Dosage: ^84 MG, 3 TOTAL DOSES^
     Dates: start: 20220913, end: 20221110

REACTIONS (2)
  - Suicidal ideation [Unknown]
  - General physical health deterioration [Unknown]
